FAERS Safety Report 17189852 (Version 1)
Quarter: 2019Q4

REPORT INFORMATION
  Report Type: Report from Study
  Country: CN (occurrence: CN)
  Receive Date: 20191223
  Receipt Date: 20191223
  Transmission Date: 20200122
  Serious: Yes (Other)
  Sender: FDA-Public Use
  Company Number: CN-ROCHE-2498229

PATIENT

DRUGS (5)
  1. OXALIPLATIN. [Suspect]
     Active Substance: OXALIPLATIN
     Indication: HER-2 POSITIVE GASTRIC CANCER
     Route: 041
  2. TEGAFUR [Suspect]
     Active Substance: TEGAFUR
     Indication: HER-2 POSITIVE GASTRIC CANCER
     Route: 048
  3. IRINOTECAN HYDROCHLORIDE. [Suspect]
     Active Substance: IRINOTECAN HYDROCHLORIDE
     Indication: HER-2 POSITIVE GASTRIC CANCER
     Route: 041
  4. CISPLATIN. [Suspect]
     Active Substance: CISPLATIN
     Indication: HER-2 POSITIVE GASTRIC CANCER
     Route: 041
  5. TRASTUZUMAB. [Suspect]
     Active Substance: TRASTUZUMAB
     Indication: HER-2 POSITIVE GASTRIC CANCER
     Route: 065

REACTIONS (7)
  - Neurotoxicity [Unknown]
  - Nephropathy toxic [Unknown]
  - Bone marrow failure [Unknown]
  - Anaphylactic reaction [Unknown]
  - Gastrointestinal disorder [Unknown]
  - Hepatotoxicity [Unknown]
  - Cardiotoxicity [Unknown]
